FAERS Safety Report 14657524 (Version 1)
Quarter: 2018Q1

REPORT INFORMATION
  Report Type: Spontaneous
  Country: US (occurrence: US)
  Receive Date: 20180320
  Receipt Date: 20180320
  Transmission Date: 20180509
  Serious: Yes (Hospitalization, Other)
  Sender: FDA-Public Use
  Company Number: US-SAREPTA THERAPEUTICS, INC-SRP-000041-2018

PATIENT
  Age: 31 Year
  Sex: Male
  Weight: 38.9 kg

DRUGS (1)
  1. EXONDYS 51 [Suspect]
     Active Substance: ETEPLIRSEN
     Indication: PRODUCT USED FOR UNKNOWN INDICATION
     Dosage: 1200 MG, WEEKLY
     Route: 042

REACTIONS (3)
  - Urinary tract infection [Unknown]
  - Nasopharyngitis [Unknown]
  - Pneumonia [Unknown]

NARRATIVE: CASE EVENT DATE: 20180219
